FAERS Safety Report 15028045 (Version 2)
Quarter: 2018Q3

REPORT INFORMATION
  Report Type: Report from Study
  Country: BR (occurrence: BR)
  Receive Date: 20180619
  Receipt Date: 20180706
  Transmission Date: 20181010
  Serious: Yes (Hospitalization, Other)
  Sender: FDA-Public Use
  Company Number: BR-ACTELION-A-CH2018-173890

PATIENT
  Age: 32 Year
  Sex: Female
  Weight: 94 kg

DRUGS (9)
  1. NEUTROFER [Concomitant]
     Active Substance: FERROUS BISGLYCINATE
     Dosage: 2 DF, BID
  2. TRACLEER [Suspect]
     Active Substance: BOSENTAN
     Indication: PULMONARY HYPERTENSION
  3. OMEPRAZOLE. [Concomitant]
     Active Substance: OMEPRAZOLE
     Dosage: 20 MG, QD
  4. PURAN [Concomitant]
     Active Substance: LEVOTHYROXINE SODIUM
  5. TRACLEER [Suspect]
     Active Substance: BOSENTAN
     Indication: PULMONARY HYPERTENSION
     Dosage: 125 MG, BID
     Route: 048
     Dates: start: 20151229
  6. MAREVAN [Concomitant]
     Active Substance: WARFARIN SODIUM
     Dosage: 2.5 MG, QD
  7. DILTIAZEM. [Concomitant]
     Active Substance: DILTIAZEM
     Dosage: 30 MG, BID
  8. SILDENAFIL. [Concomitant]
     Active Substance: SILDENAFIL
     Indication: PULMONARY ARTERIAL HYPERTENSION
     Dosage: 20 MG, TID
     Route: 065
     Dates: start: 201712
  9. PROPAFENONE. [Concomitant]
     Active Substance: PROPAFENONE
     Dosage: 150 MG, BID

REACTIONS (5)
  - Pneumonia [Recovering/Resolving]
  - Thyroid hormones decreased [Unknown]
  - Fatigue [Unknown]
  - Thyroid cancer [Unknown]
  - Surgery [Unknown]

NARRATIVE: CASE EVENT DATE: 201712
